FAERS Safety Report 21860127 (Version 1)
Quarter: 2023Q1

REPORT INFORMATION
  Report Type: Spontaneous
  Country: US (occurrence: US)
  Receive Date: 20230113
  Receipt Date: 20230113
  Transmission Date: 20230417
  Serious: No
  Sender: FDA-Public Use
  Company Number: US-BRISTOL-MYERS SQUIBB COMPANY-2023-004623

PATIENT
  Age: 81 Year
  Sex: Female
  Weight: 70.6 kg

DRUGS (18)
  1. REVLIMID [Suspect]
     Active Substance: LENALIDOMIDE
     Indication: Plasma cell myeloma
     Dosage: FREQ: DAILY FOR 21 DAYS
     Route: 048
     Dates: start: 20230109
  2. 1ST MEDX- PATCH/ LIDOCAINE EXTERNAL [Concomitant]
     Indication: Product used for unknown indication
     Dosage: DOSE: 4-0.025-5-20?ROUTE: EXTERN?FREQ: AS NEEDED
     Dates: start: 20220412
  3. AMLODIPINE BESYLATE [Concomitant]
     Active Substance: AMLODIPINE BESYLATE
     Indication: Product used for unknown indication
     Route: 048
     Dates: start: 20230102
  4. AMOXICILLIN [Concomitant]
     Active Substance: AMOXICILLIN
     Indication: Product used for unknown indication
     Route: 048
     Dates: start: 20220830
  5. CLARITIN [Concomitant]
     Active Substance: LORATADINE
     Indication: Product used for unknown indication
     Dosage: FREQ: AS NEEDED
     Route: 048
     Dates: start: 20220616
  6. CVS VITAMIN C [Concomitant]
     Indication: Product used for unknown indication
     Dosage: FREQ: 250 MG*4
     Route: 048
     Dates: start: 20220412
  7. CVS VITAMIN E [Concomitant]
     Indication: Product used for unknown indication
     Dosage: DOSE: 1000 UNIT
     Route: 048
     Dates: start: 20220412
  8. DARZALEX FASPRO [Concomitant]
     Active Substance: DARATUMUMAB\HYALURONIDASE-FIHJ
     Indication: Product used for unknown indication
     Dosage: DOSE: 1800- 30000
     Route: 058
     Dates: start: 20220616
  9. DEXAMETHASONE [Concomitant]
     Active Substance: DEXAMETHASONE
     Indication: Product used for unknown indication
     Route: 048
     Dates: start: 20220408
  10. DILTIAZEM HCL ER COATED BEADS [Concomitant]
     Indication: Product used for unknown indication
     Route: 048
     Dates: start: 20220408
  11. ELIQUIS [Concomitant]
     Active Substance: APIXABAN
     Indication: Product used for unknown indication
     Route: 048
     Dates: start: 20230102
  12. GABAPENTIN [Concomitant]
     Active Substance: GABAPENTIN
     Indication: Product used for unknown indication
     Route: 048
     Dates: start: 20220408
  13. METOPROLOL TARTRATE [Concomitant]
     Active Substance: METOPROLOL TARTRATE
     Indication: Product used for unknown indication
     Route: 048
     Dates: start: 20230102
  14. NINLARO [Concomitant]
     Active Substance: IXAZOMIB CITRATE
     Indication: Product used for unknown indication
     Route: 048
     Dates: start: 20221110
  15. OMEPRAZOLE DELAYED REL [Concomitant]
     Indication: Product used for unknown indication
     Route: 048
     Dates: start: 20220408
  16. TYLENOL EXTRA STRENGTH [Concomitant]
     Active Substance: ACETAMINOPHEN
     Indication: Product used for unknown indication
     Route: 048
     Dates: start: 20220412
  17. VALSARTAN [Concomitant]
     Active Substance: VALSARTAN
     Indication: Product used for unknown indication
     Route: 048
     Dates: start: 20230102
  18. ZOMETA [Concomitant]
     Active Substance: ZOLEDRONIC ACID
     Indication: Product used for unknown indication
     Dosage: DOSE: 4MG/ 5ML
     Route: 042
     Dates: start: 20220818

REACTIONS (1)
  - Diarrhoea [Not Recovered/Not Resolved]

NARRATIVE: CASE EVENT DATE: 20230109
